FAERS Safety Report 13372901 (Version 5)
Quarter: 2019Q1

REPORT INFORMATION
  Report Type: Spontaneous
  Country: GB (occurrence: GB)
  Receive Date: 20170327
  Receipt Date: 20190204
  Transmission Date: 20190417
  Serious: Yes (Death, Life-Threatening, Hospitalization, Other)
  Sender: FDA-Public Use
  Company Number: GB-JNJFOC-20170326567

PATIENT
  Age: 35 Year
  Sex: Female
  Weight: 141 kg

DRUGS (118)
  1. LITHIUM CARBONATE. [Suspect]
     Active Substance: LITHIUM CARBONATE
     Indication: PRODUCT USED FOR UNKNOWN INDICATION
     Route: 065
     Dates: start: 20141002
  2. TRIMETHOPRIM. [Suspect]
     Active Substance: TRIMETHOPRIM
     Indication: PRODUCT USED FOR UNKNOWN INDICATION
     Route: 065
  3. CLOZAPINE. [Suspect]
     Active Substance: CLOZAPINE
     Indication: PSYCHOTIC DISORDER
     Route: 065
     Dates: start: 20140908, end: 20140908
  4. CLOZAPINE. [Suspect]
     Active Substance: CLOZAPINE
     Indication: BORDERLINE PERSONALITY DISORDER
     Route: 065
     Dates: start: 20140908, end: 20140908
  5. CLOZAPINE. [Suspect]
     Active Substance: CLOZAPINE
     Indication: ANTISOCIAL PERSONALITY DISORDER
     Route: 065
     Dates: start: 20140911
  6. CLOZAPINE. [Suspect]
     Active Substance: CLOZAPINE
     Indication: ANTISOCIAL PERSONALITY DISORDER
     Route: 065
     Dates: start: 20140912
  7. CLOZAPINE. [Suspect]
     Active Substance: CLOZAPINE
     Indication: POST-TRAUMATIC STRESS DISORDER
     Route: 065
     Dates: start: 20140912, end: 20140913
  8. CLOZAPINE. [Suspect]
     Active Substance: CLOZAPINE
     Indication: ANTISOCIAL PERSONALITY DISORDER
     Route: 065
     Dates: start: 20140913
  9. CLOZAPINE. [Suspect]
     Active Substance: CLOZAPINE
     Indication: POST-TRAUMATIC STRESS DISORDER
     Route: 065
     Dates: start: 20140913
  10. CLOZAPINE. [Suspect]
     Active Substance: CLOZAPINE
     Indication: PSYCHOTIC DISORDER
     Route: 065
     Dates: start: 20140915
  11. CLOZAPINE. [Suspect]
     Active Substance: CLOZAPINE
     Indication: POST-TRAUMATIC STRESS DISORDER
     Route: 065
     Dates: start: 20140915
  12. CLOZAPINE. [Suspect]
     Active Substance: CLOZAPINE
     Indication: POST-TRAUMATIC STRESS DISORDER
     Route: 065
     Dates: start: 20140920, end: 20140920
  13. CLOZAPINE. [Suspect]
     Active Substance: CLOZAPINE
     Indication: PSYCHOTIC DISORDER
     Route: 065
     Dates: start: 20140921, end: 20140921
  14. CLOZAPINE. [Suspect]
     Active Substance: CLOZAPINE
     Indication: PSYCHOTIC DISORDER
     Route: 065
     Dates: start: 20140922, end: 20140928
  15. CLOZAPINE. [Suspect]
     Active Substance: CLOZAPINE
     Indication: ANTISOCIAL PERSONALITY DISORDER
     Route: 065
     Dates: start: 20140922, end: 20140928
  16. CLOZAPINE. [Suspect]
     Active Substance: CLOZAPINE
     Indication: POST-TRAUMATIC STRESS DISORDER
     Route: 065
     Dates: start: 20140922, end: 20140928
  17. CHLORPHENAMINE [Suspect]
     Active Substance: CHLORPHENIRAMINE MALEATE
     Indication: PRODUCT USED FOR UNKNOWN INDICATION
     Route: 065
  18. ATRACURIUM [Suspect]
     Active Substance: ATRACURIUM
     Indication: PRODUCT USED FOR UNKNOWN INDICATION
     Route: 065
  19. CLOZAPINE. [Suspect]
     Active Substance: CLOZAPINE
     Indication: ANTISOCIAL PERSONALITY DISORDER
     Route: 065
     Dates: start: 20140908, end: 20140908
  20. CLOZAPINE. [Suspect]
     Active Substance: CLOZAPINE
     Indication: ANTISOCIAL PERSONALITY DISORDER
     Route: 065
     Dates: start: 20140909, end: 20140909
  21. CLOZAPINE. [Suspect]
     Active Substance: CLOZAPINE
     Indication: POST-TRAUMATIC STRESS DISORDER
     Route: 065
     Dates: start: 20140912
  22. CLOZAPINE. [Suspect]
     Active Substance: CLOZAPINE
     Indication: PSYCHOTIC DISORDER
     Route: 065
     Dates: start: 20140913
  23. CLOZAPINE. [Suspect]
     Active Substance: CLOZAPINE
     Indication: ANTISOCIAL PERSONALITY DISORDER
     Route: 065
     Dates: start: 20140914, end: 20140914
  24. CLOZAPINE. [Suspect]
     Active Substance: CLOZAPINE
     Indication: ANTISOCIAL PERSONALITY DISORDER
     Route: 065
     Dates: start: 20140916, end: 20140916
  25. CLOZAPINE. [Suspect]
     Active Substance: CLOZAPINE
     Indication: PSYCHOTIC DISORDER
     Route: 065
     Dates: start: 20140918
  26. CLOZAPINE. [Suspect]
     Active Substance: CLOZAPINE
     Indication: POST-TRAUMATIC STRESS DISORDER
     Route: 065
     Dates: start: 20140918
  27. CLOZAPINE. [Suspect]
     Active Substance: CLOZAPINE
     Indication: PSYCHOTIC DISORDER
     Route: 065
     Dates: start: 20140919, end: 20140919
  28. CLOZAPINE. [Suspect]
     Active Substance: CLOZAPINE
     Indication: PSYCHOTIC DISORDER
     Route: 065
     Dates: start: 20140920
  29. CLOZAPINE. [Suspect]
     Active Substance: CLOZAPINE
     Indication: BORDERLINE PERSONALITY DISORDER
     Route: 065
     Dates: start: 20140920
  30. CLOZAPINE. [Suspect]
     Active Substance: CLOZAPINE
     Indication: BORDERLINE PERSONALITY DISORDER
     Route: 065
     Dates: start: 20140921
  31. CLOZAPINE. [Suspect]
     Active Substance: CLOZAPINE
     Indication: POST-TRAUMATIC STRESS DISORDER
     Route: 065
     Dates: start: 20140921
  32. CLOZAPINE. [Suspect]
     Active Substance: CLOZAPINE
     Indication: BORDERLINE PERSONALITY DISORDER
     Route: 065
     Dates: start: 20140929, end: 20140930
  33. CLOZAPINE. [Suspect]
     Active Substance: CLOZAPINE
     Indication: PSYCHOTIC DISORDER
     Route: 065
     Dates: start: 20140912, end: 20140913
  34. CLOZAPINE. [Suspect]
     Active Substance: CLOZAPINE
     Indication: BORDERLINE PERSONALITY DISORDER
     Route: 065
     Dates: start: 20140913
  35. CLOZAPINE. [Suspect]
     Active Substance: CLOZAPINE
     Indication: BORDERLINE PERSONALITY DISORDER
     Route: 065
     Dates: start: 20140915
  36. CLOZAPINE. [Suspect]
     Active Substance: CLOZAPINE
     Indication: BORDERLINE PERSONALITY DISORDER
     Route: 065
     Dates: start: 20140915, end: 20140915
  37. CLOZAPINE. [Suspect]
     Active Substance: CLOZAPINE
     Indication: PSYCHOTIC DISORDER
     Route: 065
     Dates: start: 20140916, end: 20140916
  38. CLOZAPINE. [Suspect]
     Active Substance: CLOZAPINE
     Indication: BORDERLINE PERSONALITY DISORDER
     Route: 065
     Dates: start: 20140917, end: 20140917
  39. CLOZAPINE. [Suspect]
     Active Substance: CLOZAPINE
     Indication: POST-TRAUMATIC STRESS DISORDER
     Route: 065
     Dates: start: 20140917, end: 20140917
  40. CLOZAPINE. [Suspect]
     Active Substance: CLOZAPINE
     Indication: BORDERLINE PERSONALITY DISORDER
     Route: 065
     Dates: start: 20140918
  41. CLOZAPINE. [Suspect]
     Active Substance: CLOZAPINE
     Indication: ANTISOCIAL PERSONALITY DISORDER
     Route: 065
     Dates: start: 20140919, end: 20140919
  42. CLOZAPINE. [Suspect]
     Active Substance: CLOZAPINE
     Indication: BORDERLINE PERSONALITY DISORDER
     Route: 065
     Dates: start: 20140920, end: 20140920
  43. CLOZAPINE. [Suspect]
     Active Substance: CLOZAPINE
     Indication: ANTISOCIAL PERSONALITY DISORDER
     Route: 065
     Dates: start: 20140920
  44. CLOZAPINE. [Suspect]
     Active Substance: CLOZAPINE
     Indication: POST-TRAUMATIC STRESS DISORDER
     Route: 065
     Dates: start: 20140921, end: 20140921
  45. CLOZAPINE. [Suspect]
     Active Substance: CLOZAPINE
     Indication: ANTISOCIAL PERSONALITY DISORDER
     Route: 065
     Dates: start: 20140921
  46. CLOZAPINE. [Suspect]
     Active Substance: CLOZAPINE
     Indication: ANTISOCIAL PERSONALITY DISORDER
     Route: 065
     Dates: start: 20140929, end: 20140930
  47. CLOZAPINE. [Suspect]
     Active Substance: CLOZAPINE
     Indication: BORDERLINE PERSONALITY DISORDER
     Route: 065
     Dates: start: 20140910, end: 20140911
  48. CLOZAPINE. [Suspect]
     Active Substance: CLOZAPINE
     Indication: BORDERLINE PERSONALITY DISORDER
     Route: 065
     Dates: start: 20140912
  49. CLOZAPINE. [Suspect]
     Active Substance: CLOZAPINE
     Indication: PSYCHOTIC DISORDER
     Route: 065
     Dates: start: 20140914, end: 20140914
  50. CLOZAPINE. [Suspect]
     Active Substance: CLOZAPINE
     Indication: POST-TRAUMATIC STRESS DISORDER
     Route: 065
     Dates: start: 20140917
  51. CLOZAPINE. [Suspect]
     Active Substance: CLOZAPINE
     Indication: PSYCHOTIC DISORDER
     Route: 065
     Dates: start: 20140917, end: 20140917
  52. CLOZAPINE. [Suspect]
     Active Substance: CLOZAPINE
     Indication: PSYCHOTIC DISORDER
     Route: 065
     Dates: start: 20140919, end: 20140919
  53. CLOZAPINE. [Suspect]
     Active Substance: CLOZAPINE
     Indication: BORDERLINE PERSONALITY DISORDER
     Route: 065
     Dates: start: 20140921, end: 20140921
  54. CLOZAPINE. [Suspect]
     Active Substance: CLOZAPINE
     Indication: ANTISOCIAL PERSONALITY DISORDER
     Route: 065
     Dates: start: 20140929, end: 20140930
  55. CLOZAPINE. [Suspect]
     Active Substance: CLOZAPINE
     Indication: POST-TRAUMATIC STRESS DISORDER
     Route: 065
     Dates: start: 20140930, end: 20141002
  56. MIDAZOLAM [Suspect]
     Active Substance: MIDAZOLAM HYDROCHLORIDE
     Indication: PRODUCT USED FOR UNKNOWN INDICATION
     Route: 065
  57. CLOZAPINE. [Suspect]
     Active Substance: CLOZAPINE
     Indication: POST-TRAUMATIC STRESS DISORDER
     Route: 065
     Dates: start: 20140908, end: 20140908
  58. CLOZAPINE. [Suspect]
     Active Substance: CLOZAPINE
     Indication: PSYCHOTIC DISORDER
     Route: 065
     Dates: start: 20140910, end: 20140911
  59. CLOZAPINE. [Suspect]
     Active Substance: CLOZAPINE
     Indication: POST-TRAUMATIC STRESS DISORDER
     Route: 065
     Dates: start: 20140910, end: 20140911
  60. CLOZAPINE. [Suspect]
     Active Substance: CLOZAPINE
     Indication: PSYCHOTIC DISORDER
     Route: 065
     Dates: start: 20140913
  61. CLOZAPINE. [Suspect]
     Active Substance: CLOZAPINE
     Indication: BORDERLINE PERSONALITY DISORDER
     Route: 065
     Dates: start: 20140913
  62. CLOZAPINE. [Suspect]
     Active Substance: CLOZAPINE
     Indication: POST-TRAUMATIC STRESS DISORDER
     Route: 065
     Dates: start: 20140913
  63. CLOZAPINE. [Suspect]
     Active Substance: CLOZAPINE
     Indication: ANTISOCIAL PERSONALITY DISORDER
     Route: 065
     Dates: start: 20140915
  64. CLOZAPINE. [Suspect]
     Active Substance: CLOZAPINE
     Indication: ANTISOCIAL PERSONALITY DISORDER
     Route: 065
     Dates: start: 20140915, end: 20140915
  65. CLOZAPINE. [Suspect]
     Active Substance: CLOZAPINE
     Indication: POST-TRAUMATIC STRESS DISORDER
     Route: 065
     Dates: start: 20140915, end: 20140915
  66. CLOZAPINE. [Suspect]
     Active Substance: CLOZAPINE
     Indication: POST-TRAUMATIC STRESS DISORDER
     Route: 065
     Dates: start: 20140916, end: 20140916
  67. CLOZAPINE. [Suspect]
     Active Substance: CLOZAPINE
     Indication: PSYCHOTIC DISORDER
     Route: 065
     Dates: start: 20140917
  68. CLOZAPINE. [Suspect]
     Active Substance: CLOZAPINE
     Indication: ANTISOCIAL PERSONALITY DISORDER
     Route: 065
     Dates: start: 20140917, end: 20140917
  69. CLOZAPINE. [Suspect]
     Active Substance: CLOZAPINE
     Indication: ANTISOCIAL PERSONALITY DISORDER
     Route: 065
     Dates: start: 20140919, end: 20140919
  70. CLOZAPINE. [Suspect]
     Active Substance: CLOZAPINE
     Indication: POST-TRAUMATIC STRESS DISORDER
     Route: 065
     Dates: start: 20140919, end: 20140919
  71. CLOZAPINE. [Suspect]
     Active Substance: CLOZAPINE
     Indication: PSYCHOTIC DISORDER
     Route: 065
     Dates: start: 20140920, end: 20140920
  72. CLOZAPINE. [Suspect]
     Active Substance: CLOZAPINE
     Indication: ANTISOCIAL PERSONALITY DISORDER
     Route: 065
     Dates: start: 20140920, end: 20140920
  73. CLOZAPINE. [Suspect]
     Active Substance: CLOZAPINE
     Indication: POST-TRAUMATIC STRESS DISORDER
     Route: 065
     Dates: start: 20140920
  74. CLOZAPINE. [Suspect]
     Active Substance: CLOZAPINE
     Indication: ANTISOCIAL PERSONALITY DISORDER
     Route: 065
     Dates: start: 20140921, end: 20140921
  75. CLOZAPINE. [Suspect]
     Active Substance: CLOZAPINE
     Indication: PSYCHOTIC DISORDER
     Route: 065
     Dates: start: 20140921
  76. CLOZAPINE. [Suspect]
     Active Substance: CLOZAPINE
     Indication: PSYCHOTIC DISORDER
     Route: 065
     Dates: start: 20140922, end: 20140928
  77. CLOZAPINE. [Suspect]
     Active Substance: CLOZAPINE
     Indication: BORDERLINE PERSONALITY DISORDER
     Route: 065
     Dates: start: 20140922, end: 20140928
  78. CLOZAPINE. [Suspect]
     Active Substance: CLOZAPINE
     Indication: POST-TRAUMATIC STRESS DISORDER
     Route: 065
     Dates: start: 20140922, end: 20140928
  79. CLOZAPINE. [Suspect]
     Active Substance: CLOZAPINE
     Indication: PSYCHOTIC DISORDER
     Route: 065
     Dates: start: 20140929, end: 20140930
  80. CLOZAPINE. [Suspect]
     Active Substance: CLOZAPINE
     Indication: POST-TRAUMATIC STRESS DISORDER
     Route: 065
     Dates: start: 20140929, end: 20140930
  81. CLOZAPINE. [Suspect]
     Active Substance: CLOZAPINE
     Indication: BORDERLINE PERSONALITY DISORDER
     Route: 065
     Dates: start: 20140930, end: 20141002
  82. CLOZAPINE. [Suspect]
     Active Substance: CLOZAPINE
     Indication: ANTISOCIAL PERSONALITY DISORDER
     Route: 065
     Dates: start: 20140930, end: 20141002
  83. CETIRIZINE [Suspect]
     Active Substance: CETIRIZINE HYDROCHLORIDE
     Indication: PRODUCT USED FOR UNKNOWN INDICATION
     Route: 065
  84. CLOZAPINE. [Suspect]
     Active Substance: CLOZAPINE
     Indication: PSYCHOTIC DISORDER
     Route: 065
     Dates: start: 20140909, end: 20140909
  85. CLOZAPINE. [Suspect]
     Active Substance: CLOZAPINE
     Indication: BORDERLINE PERSONALITY DISORDER
     Route: 065
     Dates: start: 20140909, end: 20140909
  86. CLOZAPINE. [Suspect]
     Active Substance: CLOZAPINE
     Indication: ANTISOCIAL PERSONALITY DISORDER
     Route: 065
     Dates: start: 20140910, end: 20140911
  87. CLOZAPINE. [Suspect]
     Active Substance: CLOZAPINE
     Indication: PSYCHOTIC DISORDER
     Route: 065
     Dates: start: 20140911
  88. CLOZAPINE. [Suspect]
     Active Substance: CLOZAPINE
     Indication: ANTISOCIAL PERSONALITY DISORDER
     Route: 065
     Dates: start: 20140912, end: 20140913
  89. CLOZAPINE. [Suspect]
     Active Substance: CLOZAPINE
     Indication: BORDERLINE PERSONALITY DISORDER
     Route: 065
     Dates: start: 20140914, end: 20140914
  90. CLOZAPINE. [Suspect]
     Active Substance: CLOZAPINE
     Indication: POST-TRAUMATIC STRESS DISORDER
     Route: 065
     Dates: start: 20140914, end: 20140914
  91. CLOZAPINE. [Suspect]
     Active Substance: CLOZAPINE
     Indication: BORDERLINE PERSONALITY DISORDER
     Route: 065
     Dates: start: 20140917
  92. CLOZAPINE. [Suspect]
     Active Substance: CLOZAPINE
     Indication: ANTISOCIAL PERSONALITY DISORDER
     Route: 065
     Dates: start: 20140917
  93. CLOZAPINE. [Suspect]
     Active Substance: CLOZAPINE
     Indication: PSYCHOTIC DISORDER
     Route: 065
     Dates: start: 20140918, end: 20140918
  94. CLOZAPINE. [Suspect]
     Active Substance: CLOZAPINE
     Indication: ANTISOCIAL PERSONALITY DISORDER
     Route: 065
     Dates: start: 20140918, end: 20140918
  95. CLOZAPINE. [Suspect]
     Active Substance: CLOZAPINE
     Indication: POST-TRAUMATIC STRESS DISORDER
     Route: 065
     Dates: start: 20140918, end: 20140918
  96. CLOZAPINE. [Suspect]
     Active Substance: CLOZAPINE
     Indication: ANTISOCIAL PERSONALITY DISORDER
     Route: 065
     Dates: start: 20140918
  97. CLOZAPINE. [Suspect]
     Active Substance: CLOZAPINE
     Indication: BORDERLINE PERSONALITY DISORDER
     Route: 065
     Dates: start: 20140922, end: 20140928
  98. CLOZAPINE. [Suspect]
     Active Substance: CLOZAPINE
     Indication: BORDERLINE PERSONALITY DISORDER
     Route: 065
     Dates: start: 20140929, end: 20140930
  99. FENTANYL. [Suspect]
     Active Substance: FENTANYL
     Indication: PRODUCT USED FOR UNKNOWN INDICATION
     Route: 062
     Dates: start: 201409
  100. HYDROXYZINE [Suspect]
     Active Substance: HYDROXYZINE HYDROCHLORIDE
     Indication: PRODUCT USED FOR UNKNOWN INDICATION
     Route: 065
  101. CLOZAPINE. [Suspect]
     Active Substance: CLOZAPINE
     Indication: POST-TRAUMATIC STRESS DISORDER
     Route: 065
     Dates: start: 20140909, end: 20140909
  102. CLOZAPINE. [Suspect]
     Active Substance: CLOZAPINE
     Indication: PSYCHOTIC DISORDER
     Route: 065
     Dates: start: 20140912
  103. CLOZAPINE. [Suspect]
     Active Substance: CLOZAPINE
     Indication: BORDERLINE PERSONALITY DISORDER
     Route: 065
     Dates: start: 20140912, end: 20140913
  104. CLOZAPINE. [Suspect]
     Active Substance: CLOZAPINE
     Indication: PSYCHOTIC DISORDER
     Route: 065
     Dates: start: 20140915, end: 20140915
  105. CLOZAPINE. [Suspect]
     Active Substance: CLOZAPINE
     Indication: BORDERLINE PERSONALITY DISORDER
     Route: 065
     Dates: start: 20140916, end: 20140916
  106. CLOZAPINE. [Suspect]
     Active Substance: CLOZAPINE
     Indication: ANTISOCIAL PERSONALITY DISORDER
     Route: 065
     Dates: start: 20140922, end: 20140928
  107. CLOZAPINE. [Suspect]
     Active Substance: CLOZAPINE
     Indication: PSYCHOTIC DISORDER
     Route: 065
     Dates: start: 20140929, end: 20140930
  108. ZUCLOPENTHIXOL [Suspect]
     Active Substance: ZUCLOPENTHIXOL
     Indication: PRODUCT USED FOR UNKNOWN INDICATION
     Route: 065
  109. CLOZAPINE. [Suspect]
     Active Substance: CLOZAPINE
     Indication: BORDERLINE PERSONALITY DISORDER
     Route: 065
     Dates: start: 20140911
  110. CLOZAPINE. [Suspect]
     Active Substance: CLOZAPINE
     Indication: POST-TRAUMATIC STRESS DISORDER
     Route: 065
     Dates: start: 20140911
  111. CLOZAPINE. [Suspect]
     Active Substance: CLOZAPINE
     Indication: ANTISOCIAL PERSONALITY DISORDER
     Route: 065
     Dates: start: 20140913
  112. CLOZAPINE. [Suspect]
     Active Substance: CLOZAPINE
     Indication: BORDERLINE PERSONALITY DISORDER
     Route: 065
     Dates: start: 20140918, end: 20140918
  113. CLOZAPINE. [Suspect]
     Active Substance: CLOZAPINE
     Indication: BORDERLINE PERSONALITY DISORDER
     Route: 065
     Dates: start: 20140919, end: 20140919
  114. CLOZAPINE. [Suspect]
     Active Substance: CLOZAPINE
     Indication: POST-TRAUMATIC STRESS DISORDER
     Route: 065
     Dates: start: 20140919, end: 20140919
  115. CLOZAPINE. [Suspect]
     Active Substance: CLOZAPINE
     Indication: BORDERLINE PERSONALITY DISORDER
     Route: 065
     Dates: start: 20140919, end: 20140919
  116. CLOZAPINE. [Suspect]
     Active Substance: CLOZAPINE
     Indication: POST-TRAUMATIC STRESS DISORDER
     Route: 065
     Dates: start: 20140929, end: 20140930
  117. CLOZAPINE. [Suspect]
     Active Substance: CLOZAPINE
     Indication: PSYCHOTIC DISORDER
     Route: 065
     Dates: start: 20140930, end: 20141002
  118. MIRTAZEPINE TEVA [Concomitant]
     Active Substance: MIRTAZAPINE
     Indication: PRODUCT USED FOR UNKNOWN INDICATION
     Route: 065

REACTIONS (24)
  - Macrocytosis [Fatal]
  - Subarachnoid haemorrhage [Fatal]
  - Intentional self-injury [Fatal]
  - Infection [Unknown]
  - Pneumocystis jirovecii pneumonia [Fatal]
  - Tonsillar hypertrophy [Unknown]
  - Bone marrow failure [Fatal]
  - Subdural haemorrhage [Fatal]
  - Tonsillar hypertrophy [Unknown]
  - Refusal of treatment by patient [Unknown]
  - Dizziness [Unknown]
  - Cardiac arrest [Unknown]
  - Blood urea increased [Unknown]
  - Neutropenic sepsis [Fatal]
  - Multiple organ dysfunction syndrome [Fatal]
  - Myelodysplastic syndrome [Fatal]
  - Acute respiratory distress syndrome [Fatal]
  - Product use in unapproved indication [Unknown]
  - Constipation [Unknown]
  - Personality disorder [Fatal]
  - Malaise [Unknown]
  - Oropharyngeal pain [Unknown]
  - Agitation [Unknown]
  - Inflammation [Unknown]

NARRATIVE: CASE EVENT DATE: 2014
